FAERS Safety Report 5464703-2 (Version None)
Quarter: 2007Q3

REPORT INFORMATION
  Report Type: 
  Country: None (occurrence: None)
  Receive Date: 20070921
  Receipt Date: 20070910
  Transmission Date: 20080115
  Serious: Yes (Hospitalization, Other)
  Sender: FDA-Public Use
  Company Number: US-PFIZER INC-2007035440

PATIENT
  Sex: Female
  Weight: 66.8 kg

DRUGS (7)
  1. CHANTIX [Suspect]
     Indication: SMOKING CESSATION THERAPY
     Dates: start: 20070315, end: 20070405
  2. WELLBUTRIN [Interacting]
     Indication: DEPRESSION
  3. ABILIFY [Concomitant]
  4. ZYPREXA [Concomitant]
     Dosage: DAILY DOSE:25MG
  5. LAMICTAL [Concomitant]
  6. HALDOL [Concomitant]
  7. DIOVAN [Concomitant]
     Indication: RENAL DISORDER

REACTIONS (23)
  - ANXIETY [None]
  - BIPOLAR DISORDER [None]
  - BRADYPHRENIA [None]
  - CONFUSIONAL STATE [None]
  - DECREASED APPETITE [None]
  - DEPRESSION [None]
  - DISTURBANCE IN ATTENTION [None]
  - DISTURBANCE IN SOCIAL BEHAVIOUR [None]
  - DRUG INTERACTION [None]
  - EUPHORIC MOOD [None]
  - FATIGUE [None]
  - FEELING OF DESPAIR [None]
  - FLIGHT OF IDEAS [None]
  - HALLUCINATION, AUDITORY [None]
  - INSOMNIA [None]
  - IRRITABILITY [None]
  - LETHARGY [None]
  - MANIA [None]
  - MEMORY IMPAIRMENT [None]
  - SPEECH DISORDER [None]
  - SUICIDAL IDEATION [None]
  - TEARFULNESS [None]
  - THINKING ABNORMAL [None]
